FAERS Safety Report 5599155-5 (Version None)
Quarter: 2008Q1

REPORT INFORMATION
  Report Type: 
  Country: None (occurrence: None)
  Receive Date: 20080122
  Receipt Date: 20080114
  Transmission Date: 20080703
  Serious: Yes (Death, Other)
  Sender: FDA-Public Use
  Company Number: FR-BRISTOL-MYERS SQUIBB COMPANY-14039069

PATIENT
  Age: 81 Year
  Sex: Female

DRUGS (3)
  1. COUMADIN [Suspect]
     Indication: PHLEBITIS
     Dosage: INTERRUPTED ON 28NOV07;RESTARTED ON 29NOV07;EVENT OCCURED AFTER 28 DAY TREATMENT
     Dates: start: 20071030
  2. TRILEPTAL [Suspect]
     Indication: CONVULSION
     Dosage: EVENT OCCURED AFTER 7 DAY TREATMENT
     Dates: start: 20071120, end: 20071129
  3. PREDNISONE [Concomitant]

REACTIONS (2)
  - DEATH [None]
  - INTERNATIONAL NORMALISED RATIO INCREASED [None]
